FAERS Safety Report 26016408 (Version 2)
Quarter: 2025Q4

REPORT INFORMATION
  Report Type: Spontaneous
  Country: US (occurrence: US)
  Receive Date: 20251110
  Receipt Date: 20251224
  Transmission Date: 20260117
  Serious: No
  Sender: TOLMAR
  Company Number: US-Tolmar-TLM-2025-08001

PATIENT
  Age: 8 Year
  Sex: Female

DRUGS (2)
  1. FENSOLVI [Suspect]
     Active Substance: LEUPROLIDE ACETATE
     Indication: Precocious puberty
     Dosage: EXPIRATION DATES: DEC-2026; DEC-2026; DEC-2026?GTIN: 00362935163602?NDC: 62935-163-60?SN: 5920586871
     Dates: start: 20251028
  2. DEVICE [Suspect]
     Active Substance: DEVICE
     Indication: Precocious puberty
     Dosage: EXPIRATION DATES: DEC-2026; DEC-2026; DEC-2026?GTIN: 00362935163602?NDC: 62935-163-60?SN: 5920586871

REACTIONS (2)
  - Intercepted product preparation error [Unknown]
  - Product quality issue [Unknown]

NARRATIVE: CASE EVENT DATE: 20251028
